FAERS Safety Report 10617408 (Version 3)
Quarter: 2015Q2

REPORT INFORMATION
  Report Type: Spontaneous
  Country: US (occurrence: US)
  Receive Date: 20141201
  Receipt Date: 20150417
  Transmission Date: 20150821
  Serious: Yes (Hospitalization, Other)
  Sender: FDA-Public Use
  Company Number: US-ELI_LILLY_AND_COMPANY-US201411008820

PATIENT
  Sex: Female

DRUGS (4)
  1. PROZAC [Suspect]
     Active Substance: FLUOXETINE HYDROCHLORIDE
     Indication: PRODUCT USED FOR UNKNOWN INDICATION
     Dosage: UNK, UNKNOWN
     Route: 064
     Dates: start: 20090927
  2. FLINTSTONES [Concomitant]
     Route: 064
  3. CLOTRIMAZOLE AND BETAMETHASONE [Concomitant]
     Route: 064
  4. VICODIN [Concomitant]
     Active Substance: ACETAMINOPHEN\HYDROCODONE BITARTRATE
     Route: 064

REACTIONS (4)
  - Exposure during pregnancy [Recovered/Resolved]
  - Premature rupture of membranes [Recovered/Resolved]
  - Placenta praevia haemorrhage [Recovered/Resolved]
  - Premature labour [Recovered/Resolved]
